FAERS Safety Report 14271428 (Version 1)
Quarter: 2017Q4

REPORT INFORMATION
  Report Type: Spontaneous
  Country: GB (occurrence: GB)
  Receive Date: 20171211
  Receipt Date: 20171211
  Transmission Date: 20180321
  Serious: Yes (Other)
  Sender: FDA-Public Use
  Company Number: GB-BAYER-2017-234583

PATIENT
  Age: 45 Year
  Sex: Female

DRUGS (1)
  1. ACETYLSALICYLIC ACID({=100 MG) [Suspect]
     Active Substance: ASPIRIN
     Indication: PROPHYLAXIS

REACTIONS (7)
  - Hypertension [None]
  - Cerebral haemorrhage [None]
  - Osteopenia [None]
  - Osteoporotic fracture [None]
  - Eclampsia [None]
  - Exposure during pregnancy [None]
  - Premature delivery [None]
